FAERS Safety Report 9922414 (Version 2)
Quarter: 2014Q1

REPORT INFORMATION
  Report Type: Spontaneous
  Country: FR (occurrence: FR)
  Receive Date: 20140225
  Receipt Date: 20140330
  Transmission Date: 20141002
  Serious: Yes (Hospitalization)
  Sender: FDA-Public Use
  Company Number: FR-TEVA-462936ISR

PATIENT
  Age: 73 Year
  Sex: Male

DRUGS (1)
  1. AZILECT [Suspect]
     Indication: EXTRAPYRAMIDAL DISORDER
     Route: 048
     Dates: start: 20131029, end: 20131117

REACTIONS (5)
  - Hepatic encephalopathy [Recovering/Resolving]
  - Abnormal behaviour [Unknown]
  - Speech disorder [Unknown]
  - Confusional state [Recovered/Resolved]
  - Asterixis [Recovered/Resolved]
